FAERS Safety Report 10451164 (Version 2)
Quarter: 2014Q4

REPORT INFORMATION
  Report Type: Spontaneous
  Country: US (occurrence: US)
  Receive Date: 20140912
  Receipt Date: 20141218
  Transmission Date: 20150528
  Serious: No
  Sender: FDA-Public Use
  Company Number: US-GALDERMA-US14003169

PATIENT
  Age: 57 Year
  Sex: Female

DRUGS (3)
  1. AQUANIL [Concomitant]
     Indication: THERAPEUTIC SKIN CARE TOPICAL
     Route: 061
     Dates: start: 20140812
  2. DML FORTE CREAM [Concomitant]
     Indication: DRY SKIN PROPHYLAXIS
     Route: 061
  3. MIRVASO [Suspect]
     Active Substance: BRIMONIDINE TARTRATE
     Indication: ROSACEA
     Dosage: 0.33%
     Route: 061
     Dates: start: 20140813, end: 20140817

REACTIONS (9)
  - Feeling hot [Recovered/Resolved]
  - Chemical burn of skin [Not Recovered/Not Resolved]
  - Erythema [Not Recovered/Not Resolved]
  - Rebound effect [Not Recovered/Not Resolved]
  - Condition aggravated [Not Recovered/Not Resolved]
  - Skin burning sensation [Recovered/Resolved]
  - Emotional distress [Not Recovered/Not Resolved]
  - Skin irritation [Recovered/Resolved]
  - Rash macular [Recovered/Resolved]

NARRATIVE: CASE EVENT DATE: 20140816
